FAERS Safety Report 5321865-5 (Version None)
Quarter: 2007Q2

REPORT INFORMATION
  Report Type: 
  Country: None (occurrence: None)
  Receive Date: 20070510
  Receipt Date: 20070502
  Transmission Date: 20071010
  Serious: Yes (Life-Threatening)
  Sender: FDA-Public Use
  Company Number: GB-ABBOTT-07P-167-0366773-00

PATIENT
  Age: 21 Month
  Sex: Male

DRUGS (3)
  1. VALPROATE SODIUM [Suspect]
     Indication: CONVULSION
     Dates: start: 20070319
  2. CARBAMAZEPINE [Suspect]
     Indication: CONVULSION
     Dates: start: 20070223, end: 20070318
  3. THIOPENTAL SODIUM [Suspect]
     Indication: CONVULSION
     Route: 042
     Dates: start: 20070321, end: 20070321

REACTIONS (5)
  - DRUG HYPERSENSITIVITY [None]
  - EOSINOPHILIA [None]
  - MULTI-ORGAN FAILURE [None]
  - SHOCK [None]
  - STATUS EPILEPTICUS [None]
